FAERS Safety Report 5977080-5 (Version None)
Quarter: 2008Q4

REPORT INFORMATION
  Report Type: 
  Country: None (occurrence: None)
  Receive Date: 20081203
  Receipt Date: 20081202
  Transmission Date: 20090506
  Serious: Yes (Other)
  Sender: FDA-Public Use
  Company Number: GB-RB-006858-08

PATIENT
  Age: 45 Year
  Sex: Male

DRUGS (1)
  1. BUPRENORPHINE HYDROCHLORIDE [Suspect]
     Indication: DRUG DEPENDENCE
     Route: 048

REACTIONS (3)
  - CONSTIPATION [None]
  - GENERAL PHYSICAL CONDITION ABNORMAL [None]
  - PRIAPISM [None]
